FAERS Safety Report 8886556 (Version 1)
Quarter: 2012Q4

REPORT INFORMATION
  Report Type: Report from Study
  Country: GR (occurrence: GR)
  Receive Date: 20121105
  Receipt Date: 20121105
  Transmission Date: 20130627
  Serious: Yes (Death, Hospitalization)
  Sender: FDA-Public Use
  Company Number: GR-ABBOTT-12P-066-1003288-00

PATIENT
  Sex: Male
  Weight: 84.5 kg

DRUGS (1)
  1. ZEMPLAR [Suspect]
     Indication: RENAL FAILURE CHRONIC
     Dosage: 7.5 mcg
     Route: 042
     Dates: start: 20120111, end: 20120808

REACTIONS (2)
  - Sepsis [Fatal]
  - Small intestinal obstruction [Fatal]
